FAERS Safety Report 6618610-X (Version None)
Quarter: 2010Q1

REPORT INFORMATION
  Report Type: 
  Country: None (occurrence: None)
  Receive Date: 20100308
  Receipt Date: 20100303
  Transmission Date: 20100710
  Serious: Yes (Other)
  Sender: FDA-Public Use
  Company Number: US-B.I. PHARMACEUTICALS,INC./RIDGEFIELD-2010-BP-02149PF

PATIENT
  Sex: Female

DRUGS (13)
  1. SPIRIVA [Suspect]
     Indication: CHRONIC OBSTRUCTIVE PULMONARY DISEASE
  2. DETROL LA [Suspect]
     Indication: HYPERTONIC BLADDER
     Dosage: 4 MG
  3. LYRICA [Suspect]
     Indication: FIBROMYALGIA
     Dosage: 450 MG
  4. LISINOPRIL [Concomitant]
     Dosage: 40 MG
  5. PROVIGIL [Concomitant]
     Indication: FATIGUE
  6. CYMBALTA [Concomitant]
  7. PLAVIX [Concomitant]
  8. AMBIEN [Concomitant]
  9. FLUTICASONE (FLOVENT) [Concomitant]
  10. IBANDRONATE (BONIVA) [Concomitant]
  11. SOMA [Concomitant]
  12. OXYGEN [Concomitant]
  13. OPANA [Concomitant]

REACTIONS (4)
  - DRY MOUTH [None]
  - STOMATITIS [None]
  - TOOTH EXTRACTION [None]
  - WEIGHT INCREASED [None]
